FAERS Safety Report 4343333-X (Version None)
Quarter: 2004Q1

REPORT INFORMATION
  Report Type: 
  Country: None (occurrence: None)
  Receive Date: 20040325
  Receipt Date: 20040218
  Transmission Date: 20041129
  Serious: No
  Sender: FDA-Public Use
  Company Number: USA040259795

PATIENT
  Sex: Female

DRUGS (1)
  1. FORTEO [Suspect]
     Dates: start: 20040216

REACTIONS (5)
  - COCCYDYNIA [None]
  - DIZZINESS [None]
  - NECK PAIN [None]
  - NERVOUSNESS [None]
  - SKIN TIGHTNESS [None]
